FAERS Safety Report 9491166 (Version 2)
Quarter: 2013Q1

REPORT INFORMATION
  Report Type: Not Available
  Country: US (occurrence: US)
  Receive Date: 20120619
  Receipt Date: 20120619
  Transmission Date: 20140127
  Serious: Yes (Hospitalization)
  Sender: FDA-Public Use
  Company Number: US-LUNDBECK-DKLU1062723

PATIENT
  Sex: Male

DRUGS (6)
  1. SABRIL     (TABLET) [Suspect]
     Indication: CONVULSION
     Route: 048
     Dates: start: 201003
  2. SABRIL     (TABLET) [Suspect]
     Indication: EPILEPSY
     Route: 048
     Dates: start: 201003
  3. SABRIL     (TABLET) [Suspect]
     Indication: COMPLEX PARTIAL SEIZURES
     Route: 048
     Dates: start: 201111, end: 20120314
  4. SABRIL     (TABLET) [Suspect]
     Route: 048
     Dates: start: 20120315, end: 20120409
  5. ZONEGRAN [Concomitant]
     Indication: PRODUCT USED FOR UNKNOWN INDICATION
  6. BENZODIAZAPENE [Concomitant]
     Indication: PRODUCT USED FOR UNKNOWN INDICATION

REACTIONS (4)
  - Convulsion [Unknown]
  - Tremor [Unknown]
  - Tremor [Unknown]
  - Drug ineffective [Unknown]
